FAERS Safety Report 21614008 (Version 1)
Quarter: 2022Q4

REPORT INFORMATION
  Report Type: Report from Study
  Country: FR (occurrence: FR)
  Receive Date: 20221118
  Receipt Date: 20221118
  Transmission Date: 20230112
  Serious: Yes (Hospitalization, Other)
  Sender: FDA-Public Use
  Company Number: FR-002147023-NVSC2022FR258762

PATIENT
  Age: 36 Year
  Sex: Male
  Weight: 89 kg

DRUGS (4)
  1. NELARABINE [Suspect]
     Active Substance: NELARABINE
     Indication: Acute lymphocytic leukaemia
     Dosage: 3000 MG
     Route: 042
     Dates: start: 20180326, end: 20180727
  2. MERCAPTOPURINE [Suspect]
     Active Substance: MERCAPTOPURINE
     Indication: Acute lymphocytic leukaemia
     Dosage: 100 MG
     Route: 048
     Dates: start: 20180326, end: 201809
  3. METHOTREXATE [Suspect]
     Active Substance: METHOTREXATE
     Indication: Acute lymphocytic leukaemia
     Dosage: 50 MG, WEEK
     Route: 048
     Dates: start: 20180326, end: 201809
  4. VINCRISTINE [Suspect]
     Active Substance: VINCRISTINE
     Indication: Acute lymphocytic leukaemia
     Dosage: 2 MG
     Route: 042
     Dates: start: 20180326, end: 20180827

REACTIONS (1)
  - Cholestasis [Recovering/Resolving]

NARRATIVE: CASE EVENT DATE: 20181010
